FAERS Safety Report 24730051 (Version 1)
Quarter: 2024Q4

REPORT INFORMATION
  Report Type: Report from Study
  Country: JP (occurrence: JP)
  Receive Date: 20241213
  Receipt Date: 20241213
  Transmission Date: 20250115
  Serious: Yes (Other)
  Sender: JOHNSON AND JOHNSON
  Company Number: JP-JNJFOC-20241228301

PATIENT

DRUGS (4)
  1. DARATUMUMAB\HYALURONIDASE-FIHJ [Suspect]
     Active Substance: DARATUMUMAB\HYALURONIDASE-FIHJ
     Indication: Plasma cell myeloma
     Route: 058
  2. DARZALEX [Suspect]
     Active Substance: DARATUMUMAB
     Indication: Plasma cell myeloma
     Route: 042
  3. LENALIDOMIDE [Suspect]
     Active Substance: LENALIDOMIDE
     Indication: Plasma cell myeloma
     Route: 065
  4. DEXAMETHASONE [Suspect]
     Active Substance: DEXAMETHASONE
     Indication: Plasma cell myeloma
     Route: 065

REACTIONS (13)
  - Neutropenia [Unknown]
  - Sepsis [Unknown]
  - Pneumonia [Unknown]
  - Thrombocytopenia [Unknown]
  - Colitis [Unknown]
  - Cholangitis [Unknown]
  - Lymphopenia [Unknown]
  - Infection [Unknown]
  - Anaemia [Unknown]
  - Urinary tract infection [Unknown]
  - Infusion related reaction [Unknown]
  - Cellulitis [Unknown]
  - Upper respiratory tract infection [Unknown]
